FAERS Safety Report 5214061-3 (Version None)
Quarter: 2007Q1

REPORT INFORMATION
  Report Type: 
  Country: None (occurrence: None)
  Receive Date: 20070122
  Receipt Date: 20070110
  Transmission Date: 20070707
  Serious: Yes (Hospitalization)
  Sender: FDA-Public Use
  Company Number: FR-BRISTOL-MYERS SQUIBB COMPANY-13626833

PATIENT
  Age: 49 Year

DRUGS (4)
  1. CETUXIMAB [Suspect]
     Indication: COLON CANCER
     Route: 041
     Dates: start: 20060531, end: 20060531
  2. OXALIPLATIN [Suspect]
     Indication: COLON CANCER
     Route: 041
     Dates: start: 20060531, end: 20060531
  3. FLUOROURACIL [Suspect]
     Indication: COLON CANCER
     Route: 041
     Dates: start: 20060531, end: 20060531
  4. FOLINIC ACID [Suspect]
     Indication: COLON CANCER
     Route: 041
     Dates: start: 20060531, end: 20060531

REACTIONS (7)
  - ABSCESS LIMB [None]
  - CHILLS [None]
  - INFECTION [None]
  - MUSCULOSKELETAL PAIN [None]
  - POLLAKIURIA [None]
  - PURPURA [None]
  - PYREXIA [None]
